FAERS Safety Report 8188694-9 (Version None)
Quarter: 2012Q1

REPORT INFORMATION
  Report Type: 
  Country: None (occurrence: None)
  Receive Date: 20120306
  Receipt Date: 20120221
  Transmission Date: 20120608
  Serious: Yes (Hospitalization)
  Sender: FDA-Public Use
  Company Number: IE-MEDIMMUNE-MEDI-0014877

PATIENT
  Sex: Male

DRUGS (3)
  1. RANITIDINE HCL [Concomitant]
  2. SYNAGIS [Suspect]
     Route: 030
     Dates: start: 20111223, end: 20111223
  3. CAREVOL [Concomitant]

REACTIONS (5)
  - APNOEA [None]
  - SKIN DISCOLOURATION [None]
  - GASTROOESOPHAGEAL REFLUX DISEASE [None]
  - BRONCHIOLITIS [None]
  - RHINORRHOEA [None]
